FAERS Safety Report 16560389 (Version 1)
Quarter: 2019Q3

REPORT INFORMATION
  Report Type: Report from Study
  Country: US (occurrence: US)
  Receive Date: 20190711
  Receipt Date: 20190711
  Transmission Date: 20191004
  Serious: Yes (Death)
  Sender: FDA-Public Use
  Company Number: US-ROCHE-2353676

PATIENT

DRUGS (3)
  1. RITUXIMAB. [Suspect]
     Active Substance: RITUXIMAB
     Indication: B-CELL LYMPHOMA
     Route: 042
  2. CLADRIBINE. [Suspect]
     Active Substance: CLADRIBINE
     Indication: B-CELL LYMPHOMA
     Route: 042
  3. VORINOSTAT [Suspect]
     Active Substance: VORINOSTAT
     Indication: B-CELL LYMPHOMA
     Route: 048

REACTIONS (1)
  - Pulmonary haemorrhage [Fatal]
